FAERS Safety Report 6612514-4 (Version None)
Quarter: 2010Q1

REPORT INFORMATION
  Report Type: 
  Country: None (occurrence: None)
  Receive Date: 20100303
  Receipt Date: 20100218
  Transmission Date: 20100710
  Serious: Yes (Other)
  Sender: FDA-Public Use
  Company Number: FR-JNJFOC-20100300507

PATIENT
  Age: 2 Decade
  Sex: Female

DRUGS (1)
  1. TRAMADOL HYDROCHLORIDE [Suspect]
     Indication: DRUG USE FOR UNKNOWN INDICATION
     Dosage: 3-4 TABLETS
     Route: 048

REACTIONS (2)
  - DISTURBANCE IN ATTENTION [None]
  - VICTIM OF SEXUAL ABUSE [None]
